FAERS Safety Report 20775839 (Version 1)
Quarter: 2022Q2

REPORT INFORMATION
  Report Type: Spontaneous
  Country: FR (occurrence: FR)
  Receive Date: 20220502
  Receipt Date: 20220502
  Transmission Date: 20220721
  Serious: Yes (Hospitalization)
  Sender: FDA-Public Use
  Company Number: None

PATIENT
  Age: 65 Year
  Sex: Male
  Weight: 51 kg

DRUGS (5)
  1. MEDROL [Suspect]
     Active Substance: METHYLPREDNISOLONE
     Indication: Adrenocortical steroid therapy
     Dosage: 48 MG, 1X/DAY
     Route: 048
     Dates: start: 201801
  2. OXAZEPAM [Concomitant]
     Active Substance: OXAZEPAM
  3. AMIODARONE [Concomitant]
     Active Substance: AMIODARONE
  4. PERINDOPRIL [Concomitant]
     Active Substance: PERINDOPRIL
  5. ELIQUIS [Concomitant]
     Active Substance: APIXABAN

REACTIONS (1)
  - Diabetes mellitus inadequate control [Recovered/Resolved]

NARRATIVE: CASE EVENT DATE: 20180228
